FAERS Safety Report 4526256-2 (Version None)
Quarter: 2004Q4

REPORT INFORMATION
  Report Type: 
  Country: None (occurrence: None)
  Receive Date: 20041213
  Receipt Date: 20041123
  Transmission Date: 20050328
  Serious: Yes (Other)
  Sender: FDA-Public Use
  Company Number: 23100208

PATIENT
  Age: 75 Year
  Sex: Female

DRUGS (7)
  1. ARGATROBAN [Suspect]
     Indication: CEREBRAL INFARCTION
     Dosage: 60 MG DAILY IV
     Route: 042
     Dates: start: 20041023, end: 20041024
  2. ARGATROBAN [Suspect]
     Indication: CEREBRAL INFARCTION
     Dosage: 20 MG DAILY IV
     Route: 042
     Dates: start: 20041026, end: 20041028
  3. RADICUT [Suspect]
     Indication: CEREBRAL INFARCTION
     Dosage: 60 MG DAILY IV
     Route: 042
     Dates: start: 20041023, end: 20041028
  4. PENTCILLIN [Suspect]
     Indication: INFECTION
     Dosage: 2 G DAILY IV
     Route: 042
     Dates: start: 20041025, end: 20041028
  5. FAMOTIDINE [Concomitant]
  6. GLYCEOL [Concomitant]
  7. MEROPEN [Concomitant]

REACTIONS (5)
  - ALANINE AMINOTRANSFERASE INCREASED [None]
  - ASPARTATE AMINOTRANSFERASE INCREASED [None]
  - BLOOD ALKALINE PHOSPHATASE INCREASED [None]
  - GAMMA-GLUTAMYLTRANSFERASE INCREASED [None]
  - HEPATIC FUNCTION ABNORMAL [None]
